FAERS Safety Report 21504311 (Version 1)
Quarter: 2022Q4

REPORT INFORMATION
  Report Type: Spontaneous
  Country: US (occurrence: US)
  Receive Date: 20221025
  Receipt Date: 20221025
  Transmission Date: 20230113
  Serious: No
  Sender: FDA-Public Use
  Company Number: US-Albireo AB-2022ALB000290

PATIENT
  Age: 7 Month
  Sex: Male

DRUGS (1)
  1. BYLVAY [Suspect]
     Active Substance: ODEVIXIBAT
     Indication: Product used for unknown indication
     Route: 048

REACTIONS (2)
  - Vomiting [Not Recovered/Not Resolved]
  - Product dose omission issue [Not Recovered/Not Resolved]
